FAERS Safety Report 24772808 (Version 2)
Quarter: 2024Q4

REPORT INFORMATION
  Report Type: Report from Study
  Country: US (occurrence: US)
  Receive Date: 20241225
  Receipt Date: 20241229
  Transmission Date: 20250115
  Serious: No
  Sender: SANDOZ
  Company Number: US-SANDOZ-SDZ2024US093099

PATIENT
  Age: 15 Year
  Sex: Male

DRUGS (4)
  1. OMNITROPE [Suspect]
     Active Substance: SOMATROPIN
     Indication: Short stature
     Dosage: 0.60 ML 2 DOSE EVERY (5.8 MG VIAL)
     Route: 058
     Dates: start: 20241104
  2. OMNITROPE [Suspect]
     Active Substance: SOMATROPIN
     Indication: Short stature
     Dosage: 0.60 ML 2 DOSE EVERY (5.8 MG VIAL)
     Route: 058
     Dates: start: 20241104
  3. OMNITROPE [Suspect]
     Active Substance: SOMATROPIN
     Dosage: 0.3 ML
     Route: 058
  4. OMNITROPE [Suspect]
     Active Substance: SOMATROPIN
     Dosage: 0.3 ML
     Route: 058

REACTIONS (10)
  - Staphylococcal infection [Unknown]
  - Injection site mass [Unknown]
  - Pain [Unknown]
  - Arthralgia [Unknown]
  - Injection site haemorrhage [Unknown]
  - Therapy change [Unknown]
  - Wrong technique in product usage process [Unknown]
  - Incorrect dose administered by device [Unknown]
  - Incorrect route of product administration [Unknown]
  - Needle issue [Unknown]

NARRATIVE: CASE EVENT DATE: 20241101
